FAERS Safety Report 17741302 (Version 1)
Quarter: 2020Q2

REPORT INFORMATION
  Report Type: Report from Study
  Country: CO (occurrence: CO)
  Receive Date: 20200504
  Receipt Date: 20200504
  Transmission Date: 20200714
  Serious: Yes (Hospitalization)
  Sender: FDA-Public Use
  Company Number: NVSC2020CO072250

PATIENT
  Sex: Female

DRUGS (5)
  1. KISQALI [Suspect]
     Active Substance: RIBOCICLIB
     Dosage: 200 MG, TID
     Route: 048
     Dates: start: 201911
  2. FEMARA [Suspect]
     Active Substance: LETROZOLE
     Indication: BREAST CANCER
     Dosage: 2.5 MG, QD
     Route: 048
     Dates: start: 201911
  3. LYRICA [Concomitant]
     Active Substance: PREGABALIN
     Indication: SLEEP DISORDER
     Dosage: 75 MG, QD (AT NIGHT)
     Route: 065
  4. ESOMEPRAZOLE. [Concomitant]
     Active Substance: ESOMEPRAZOLE MAGNESIUM
     Indication: GASTRITIS
     Dosage: UNK UNK, QD
     Route: 065
  5. KISQALI [Suspect]
     Active Substance: RIBOCICLIB
     Indication: BREAST CANCER METASTATIC
     Dosage: 600 MG, QD  (TABLETS OF 200 MG)
     Route: 048

REACTIONS (10)
  - Fear [Recovering/Resolving]
  - Ill-defined disorder [Unknown]
  - Chest pain [Unknown]
  - Abdominal pain upper [Unknown]
  - Rhinorrhoea [Unknown]
  - Abdominal discomfort [Unknown]
  - Oxygen saturation [Unknown]
  - Bone pain [Unknown]
  - Headache [Recovering/Resolving]
  - Diarrhoea [Recovered/Resolved]
